FAERS Safety Report 9500954 (Version 2)
Quarter: 2013Q4

REPORT INFORMATION
  Report Type: Spontaneous
  Country: US (occurrence: US)
  Receive Date: 20130905
  Receipt Date: 20131018
  Transmission Date: 20140711
  Serious: Yes (Life-Threatening, Hospitalization)
  Sender: FDA-Public Use
  Company Number: PHHY2013US095016

PATIENT
  Age: 56 Year
  Sex: Male

DRUGS (7)
  1. METOPROLOL [Suspect]
     Indication: CARDIOMYOPATHY
     Dosage: 100 MG
     Route: 048
  2. LISINOPRIL [Suspect]
     Indication: HYPERTENSION
     Route: 048
  3. FUROSEMIDE [Suspect]
     Indication: CARDIOMYOPATHY
     Route: 048
  4. ISOSORBIDE DINITRATE [Suspect]
     Indication: CARDIOMYOPATHY
     Route: 048
  5. DIPHENHYDRAMINE [Suspect]
     Dosage: 1.2 G
  6. INSULIN GLARGINE [Suspect]
     Indication: TYPE 2 DIABETES MELLITUS
     Dosage: 3300 U, UNK
     Route: 058
  7. ATROPINE [Concomitant]
     Indication: BRADYCARDIA
     Dosage: 1 MG, ONCE
     Route: 042

REACTIONS (6)
  - Suicide attempt [Unknown]
  - Diet refusal [Unknown]
  - Hypoglycaemia [Recovering/Resolving]
  - Somnolence [Recovering/Resolving]
  - Hypotension [Recovering/Resolving]
  - Intentional overdose [Unknown]
